FAERS Safety Report 16079534 (Version 3)
Quarter: 2019Q2

REPORT INFORMATION
  Report Type: Spontaneous
  Country: FR (occurrence: FR)
  Receive Date: 20190315
  Receipt Date: 20190403
  Transmission Date: 20190711
  Serious: No
  Sender: FDA-Public Use
  Company Number: FR-009507513-1903FRA005521

PATIENT
  Age: 30 Year
  Sex: Female

DRUGS (4)
  1. AMOROLFINE [Concomitant]
     Active Substance: AMOROLFINE
     Dosage: UNK
     Route: 061
  2. ALENDRONATE SODIUM. [Suspect]
     Active Substance: ALENDRONATE SODIUM
     Dosage: UNK
     Route: 048
  3. AZATHIOPRINE. [Concomitant]
     Active Substance: AZATHIOPRINE
     Dosage: UNK
  4. MYCOPHENOLATE MOFETIL. [Concomitant]
     Active Substance: MYCOPHENOLATE MOFETIL
     Dosage: UNK

REACTIONS (1)
  - Maternal exposure during pregnancy [Unknown]
